FAERS Safety Report 10255959 (Version 1)
Quarter: 2014Q2

REPORT INFORMATION
  Report Type: Report from Study
  Country: US (occurrence: US)
  Receive Date: 20140624
  Receipt Date: 20140624
  Transmission Date: 20141212
  Serious: Yes (Hospitalization)
  Sender: FDA-Public Use
  Company Number: US-ACTELION-A-US2014-100557

PATIENT
  Age: 50 Year
  Sex: Female

DRUGS (2)
  1. TRACLEER [Suspect]
     Indication: PULMONARY ARTERIAL HYPERTENSION
     Dosage: 125 MG, BID
     Route: 048
     Dates: start: 2011
  2. LEVOTHYROXINE [Concomitant]
     Dosage: 88 MCG, QD
     Dates: start: 2002

REACTIONS (7)
  - Knee arthroplasty [Recovered/Resolved]
  - Arthritis [Recovered/Resolved]
  - Eye swelling [Recovering/Resolving]
  - Vision blurred [Recovering/Resolving]
  - Eye irritation [Recovering/Resolving]
  - Eye discharge [Recovering/Resolving]
  - Eye pruritus [Recovering/Resolving]
